FAERS Safety Report 6645808-7 (Version None)
Quarter: 2010Q1

REPORT INFORMATION
  Report Type: 
  Country: None (occurrence: None)
  Receive Date: 20100323
  Receipt Date: 20100319
  Transmission Date: 20100710
  Serious: Yes (Other)
  Sender: FDA-Public Use
  Company Number: US-ELI_LILLY_AND_COMPANY-US201003004460

PATIENT
  Sex: Female
  Weight: 133.79 kg

DRUGS (7)
  1. BYETTA [Suspect]
     Dosage: UNK, UNK
     Dates: start: 20070725, end: 20070925
  2. BYETTA [Suspect]
     Dates: start: 20070913, end: 20071013
  3. METFORMIN HCL [Concomitant]
     Indication: DIABETES MELLITUS
  4. BETA BLOCKING AGENTS [Concomitant]
     Indication: BLOOD PRESSURE INCREASED
  5. CALCIUM [Concomitant]
     Indication: ARTHRITIS
  6. TYLENOL (CAPLET) [Concomitant]
     Indication: HEADACHE
  7. ANTIBIOTICS [Concomitant]

REACTIONS (5)
  - CREATININE RENAL CLEARANCE INCREASED [None]
  - CREATININE URINE INCREASED [None]
  - CROHN'S DISEASE [None]
  - PANCREATITIS [None]
  - RENAL INJURY [None]
